FAERS Safety Report 9444755 (Version 1)
Quarter: 2013Q3

REPORT INFORMATION
  Report Type: Report from Study
  Country: KR (occurrence: KR)
  Receive Date: 20130807
  Receipt Date: 20130807
  Transmission Date: 20140515
  Serious: Yes (Hospitalization)
  Sender: FDA-Public Use
  Company Number: KR-JNJFOC-20130717321

PATIENT
  Age: 15 Year
  Sex: Female
  Weight: 16.7 kg

DRUGS (6)
  1. REMICADE [Suspect]
     Indication: CROHN^S DISEASE
     Route: 042
     Dates: start: 20130228, end: 20130618
  2. SOLUCORTEF [Concomitant]
     Indication: CROHN^S DISEASE
     Route: 042
     Dates: start: 20130228, end: 20130228
  3. PENTASA [Concomitant]
     Indication: CROHN^S DISEASE
     Route: 048
     Dates: start: 20110812
  4. PHENIRAMINE [Concomitant]
     Indication: ANTIALLERGIC THERAPY
     Route: 042
     Dates: start: 20130423, end: 20130423
  5. PHENIRAMINE [Concomitant]
     Indication: ANTIALLERGIC THERAPY
     Route: 042
     Dates: start: 20130228, end: 20130228
  6. PHENIRAMINE [Concomitant]
     Indication: ANTIALLERGIC THERAPY
     Route: 042
     Dates: start: 20130618, end: 20130618

REACTIONS (1)
  - Crohn^s disease [Recovered/Resolved]
